FAERS Safety Report 9136352 (Version 1)
Quarter: 2013Q1

REPORT INFORMATION
  Report Type: Spontaneous
  Country: US (occurrence: US)
  Receive Date: 20130304
  Receipt Date: 20130304
  Transmission Date: 20140127
  Serious: Yes (Other)
  Sender: FDA-Public Use
  Company Number: US-ABBOTT-12P-163-0951771-00

PATIENT
  Sex: Male
  Weight: 83.99 kg

DRUGS (2)
  1. ANDROGEL 1% [Suspect]
     Indication: BLOOD TESTOSTERONE DECREASED
     Dosage: 5 GRAMS DAILY
     Dates: start: 2004, end: 201201
  2. ANDROGEL 1% [Suspect]
     Dosage: QTY 2/5 GRAM PACKETS DAILY
     Dates: start: 201201

REACTIONS (4)
  - Dyspnoea [Recovered/Resolved]
  - Acne [Not Recovered/Not Resolved]
  - Blood testosterone free decreased [Unknown]
  - Acne [Unknown]
